FAERS Safety Report 24462524 (Version 1)
Quarter: 2024Q4

REPORT INFORMATION
  Report Type: Spontaneous
  Country: ES (occurrence: ES)
  Receive Date: 20241018
  Receipt Date: 20241018
  Transmission Date: 20250115
  Serious: Yes (Disabling)
  Sender: RANBAXY
  Company Number: ES-SUN PHARMACEUTICAL INDUSTRIES LTD-2024RR-471958

PATIENT
  Age: 12 Year
  Sex: Male

DRUGS (4)
  1. ARIPIPRAZOLE [Suspect]
     Active Substance: ARIPIPRAZOLE
     Indication: Tourette^s disorder
     Dosage: UNK
     Route: 065
  2. METHYLPHENIDATE [Suspect]
     Active Substance: METHYLPHENIDATE
     Indication: Tourette^s disorder
     Dosage: UNK
     Route: 065
  3. ATOMOXETINE [Suspect]
     Active Substance: ATOMOXETINE HYDROCHLORIDE
     Indication: Flat affect
     Dosage: UNK
     Route: 065
  4. ATOMOXETINE [Suspect]
     Active Substance: ATOMOXETINE HYDROCHLORIDE
     Indication: Attention deficit hyperactivity disorder

REACTIONS (6)
  - Therapeutic product effect incomplete [Unknown]
  - Condition aggravated [Unknown]
  - Insomnia [Unknown]
  - Decreased appetite [Unknown]
  - Drug ineffective [Unknown]
  - Extrapyramidal disorder [Unknown]
